FAERS Safety Report 6677326-4 (Version None)
Quarter: 2010Q2

REPORT INFORMATION
  Report Type: 
  Country: None (occurrence: None)
  Receive Date: 20100412
  Receipt Date: 20100401
  Transmission Date: 20101027
  Serious: Yes (Hospitalization)
  Sender: FDA-Public Use
  Company Number: US-SANOFI-AVENTIS-2010SA019829

PATIENT
  Sex: Female

DRUGS (2)
  1. LANTUS [Suspect]
     Route: 058
  2. NOVOLOG [Suspect]
     Route: 065

REACTIONS (6)
  - CARDIAC FAILURE [None]
  - CONDITION AGGRAVATED [None]
  - DYSPNOEA [None]
  - GAIT DISTURBANCE [None]
  - HYPOTENSION [None]
  - LOSS OF CONSCIOUSNESS [None]
